FAERS Safety Report 22037867 (Version 2)
Quarter: 2024Q2

REPORT INFORMATION
  Report Type: Spontaneous
  Country: JP (occurrence: JP)
  Receive Date: 20230227
  Receipt Date: 20240502
  Transmission Date: 20240715
  Serious: Yes (Hospitalization)
  Sender: FDA-Public Use
  Company Number: JP-TAKEDA-2023TJP001669

PATIENT
  Age: 7 Decade
  Sex: Male

DRUGS (1)
  1. LEUPLIN [Suspect]
     Active Substance: LEUPROLIDE ACETATE
     Indication: Prostate cancer
     Dosage: KIT 22.5 MILLIGRAM, Q6MONTHS
     Route: 058

REACTIONS (3)
  - Fracture [Unknown]
  - Hospitalisation [Unknown]
  - Product dose omission issue [Unknown]
